FAERS Safety Report 6355625-3 (Version None)
Quarter: 2009Q3

REPORT INFORMATION
  Report Type: 
  Country: None (occurrence: None)
  Receive Date: 20090914
  Receipt Date: 20090907
  Transmission Date: 20100115
  Serious: No
  Sender: FDA-Public Use
  Company Number: SE-MERCK-0908SWE00002

PATIENT
  Age: 70 Year
  Sex: Male

DRUGS (2)
  1. COZAAR [Suspect]
     Route: 048
  2. FELODIPINE [Concomitant]
     Route: 065

REACTIONS (1)
  - MENINGORRHAGIA [None]
